FAERS Safety Report 17361101 (Version 1)
Quarter: 2020Q1

REPORT INFORMATION
  Report Type: Spontaneous
  Country: CA (occurrence: CA)
  Receive Date: 20200131
  Receipt Date: 20200131
  Transmission Date: 20200409
  Serious: Yes (Hospitalization)
  Sender: FDA-Public Use
  Company Number: None

PATIENT
  Age: 64 Year
  Sex: Female
  Weight: 54 kg

DRUGS (6)
  1. PANTOPRAXZOLE + COLCHICINE [Concomitant]
  2. CALCIUM + VIT D [Concomitant]
     Active Substance: CALCIUM\VITAMIN D
  3. NAPROXEN. [Concomitant]
     Active Substance: NAPROXEN
  4. IBRANCE [Suspect]
     Active Substance: PALBOCICLIB
     Indication: BREAST CANCER METASTATIC
     Route: 048
     Dates: start: 20190131
  5. LETROZOLE 2.5MG [Suspect]
     Active Substance: LETROZOLE
  6. XARELTO [Concomitant]
     Active Substance: RIVAROXABAN

REACTIONS (3)
  - Chest pain [None]
  - Pulmonary embolism [None]
  - Pneumonitis [None]

NARRATIVE: CASE EVENT DATE: 20200108
